FAERS Safety Report 9444216 (Version 1)
Quarter: 2013Q3

REPORT INFORMATION
  Report Type: Spontaneous
  Country: CA (occurrence: CA)
  Receive Date: 20130807
  Receipt Date: 20130807
  Transmission Date: 20140515
  Serious: Yes (Other)
  Sender: FDA-Public Use
  Company Number: CA-ASTRAZENECA-2013SE58349

PATIENT
  Age: 53 Year
  Sex: Male

DRUGS (5)
  1. SEROQUEL [Suspect]
     Route: 048
     Dates: start: 2003
  2. VALTREX [Concomitant]
     Route: 048
  3. GENLASAZINE XR [Concomitant]
     Route: 048
  4. APO ESOMEPRAZOLE [Concomitant]
     Dosage: 40MG, TIB
     Route: 048
  5. DELATESTRYL [Concomitant]
     Dosage: 1 WEEKLY
     Route: 042

REACTIONS (3)
  - VIIth nerve paralysis [Unknown]
  - Condition aggravated [Unknown]
  - Dysphonia [Unknown]
